FAERS Safety Report 20454833 (Version 1)
Quarter: 2022Q1

REPORT INFORMATION
  Report Type: Spontaneous
  Country: CN (occurrence: CN)
  Receive Date: 20220210
  Receipt Date: 20220210
  Transmission Date: 20220423
  Serious: Yes (Other)
  Sender: FDA-Public Use
  Company Number: CN-PFIZER INC-202200214667

PATIENT
  Age: 5 Year
  Sex: Female
  Weight: 18.5 kg

DRUGS (2)
  1. METHOTREXATE [Suspect]
     Active Substance: METHOTREXATE
     Indication: Acute lymphocytic leukaemia
     Dosage: 3.2 G, 1X/DAY
     Route: 041
     Dates: start: 20211106, end: 20211107
  2. METHOTREXATE [Suspect]
     Active Substance: METHOTREXATE
     Indication: Chemotherapy

REACTIONS (4)
  - Mouth ulceration [Recovered/Resolved]
  - Coating in mouth [Recovered/Resolved]
  - Pain [Recovering/Resolving]
  - Pyrexia [Recovered/Resolved]

NARRATIVE: CASE EVENT DATE: 20211110
